FAERS Safety Report 8365273-1 (Version None)
Quarter: 2012Q2

REPORT INFORMATION
  Report Type: 
  Country: None (occurrence: None)
  Receive Date: 20120516
  Receipt Date: 20120329
  Transmission Date: 20120825
  Serious: Yes (Life-Threatening, Hospitalization, Other)
  Sender: FDA-Public Use
  Company Number: JP-TEVA-2011003856

PATIENT
  Age: 67 Year
  Sex: Male
  Weight: 70.4 kg

DRUGS (10)
  1. OXYCODONE HYDROCHLORIDE [Concomitant]
     Indication: CANCER PAIN
     Dosage: 20 MILLIGRAM;
  2. TREANDA [Suspect]
     Route: 042
     Dates: start: 20110316, end: 20110317
  3. RITUXIMAB [Concomitant]
     Indication: NON-HODGKIN'S LYMPHOMA
     Dates: start: 20110203
  4. OMEPRAZOLE [Concomitant]
     Indication: GASTROOESOPHAGEAL REFLUX DISEASE
     Dosage: 10 MILLIGRAM;
  5. DOXAZOSIN MESYLATE [Concomitant]
     Indication: HYPERTENSION
     Dosage: 1 MILLIGRAM;
  6. TREANDA [Suspect]
     Route: 042
     Dates: start: 20110426, end: 20110427
  7. TREANDA [Suspect]
     Indication: B-CELL LYMPHOMA
     Route: 042
     Dates: start: 20110209, end: 20111101
  8. METFFORMIN HYDROCHLORIDE [Concomitant]
     Indication: DIABETES MELLITUS
     Dosage: 500 MILLIGRAM;
  9. ALLOPURINOL [Concomitant]
     Indication: PROPHYLAXIS
     Dosage: 2 TABLET;
  10. NIFEDIPINE [Concomitant]
     Indication: HYPERTENSION
     Dosage: 40 MILLIGRAM;

REACTIONS (8)
  - RED BLOOD CELL COUNT DECREASED [None]
  - PLATELET COUNT DECREASED [None]
  - NEUTROPHIL COUNT DECREASED [None]
  - CELLULITIS [None]
  - WHITE BLOOD CELL COUNT DECREASED [None]
  - HAEMOGLOBIN DECREASED [None]
  - LYMPHOCYTE COUNT DECREASED [None]
  - MYELODYSPLASTIC SYNDROME [None]
